FAERS Safety Report 22101742 (Version 1)
Quarter: 2023Q1

REPORT INFORMATION
  Report Type: Spontaneous
  Country: GB (occurrence: GB)
  Receive Date: 20230316
  Receipt Date: 20230316
  Transmission Date: 20230418
  Serious: Yes (Other)
  Sender: FDA-Public Use
  Company Number: None

PATIENT
  Age: 44 Year
  Sex: Female
  Weight: 116 kg

DRUGS (3)
  1. PREGABALIN [Suspect]
     Active Substance: PREGABALIN
     Indication: Ill-defined disorder
     Dosage: UNK
     Route: 048
     Dates: start: 20221214
  2. DIAZEPAM [Concomitant]
     Active Substance: DIAZEPAM
     Indication: Ill-defined disorder
     Dosage: UNK, PRN (TAKE 1 AS NEEDED. CAN BE ADDICTIVE SO REDUCE/LIMIT USE AS ADVISED AND STRICTLY USE ON A WH
     Route: 065
     Dates: start: 20230131, end: 20230228
  3. PREGABALIN [Concomitant]
     Active Substance: PREGABALIN
     Indication: Ill-defined disorder
     Dosage: UNK (TAKE ONE IN THE MORNING AND TWO IN THE EVENING)
     Route: 065
     Dates: start: 20221201

REACTIONS (1)
  - Exfoliative rash [Recovering/Resolving]

NARRATIVE: CASE EVENT DATE: 20230110
